FAERS Safety Report 5874119-2 (Version None)
Quarter: 2008Q3

REPORT INFORMATION
  Report Type: 
  Country: None (occurrence: None)
  Receive Date: 20080829
  Receipt Date: 20071024
  Transmission Date: 20090109
  Serious: Yes (Hospitalization)
  Sender: FDA-Public Use
  Company Number: 2007-01031FE

PATIENT
  Age: 71 Year
  Sex: Female

DRUGS (4)
  1. GNRH ( ) (LUTEINIZING HORMONE-RELESING HORMONE) [Suspect]
     Indication: DIAGNOSTIC PROCEDURE
     Dosage: IV
     Route: 042
  2. TRH ( ) (THYROTROPHIN-RELEASING HORMONE) [Suspect]
     Indication: DIAGNOSTIC PROCEDURE
     Dosage: IV
     Route: 042
  3. CRH ( ) (CORTICOLIBERIN HUMAN) [Suspect]
     Indication: DIAGNOSTIC PROCEDURE
     Dosage: IV
     Route: 042
  4. GHRH ( ) (SOMATORELIN) [Suspect]
     Indication: DIAGNOSTIC PROCEDURE
     Dosage: IV
     Route: 042

REACTIONS (4)
  - IIIRD NERVE PARALYSIS [None]
  - IVTH NERVE PARALYSIS [None]
  - PITUITARY HAEMORRHAGE [None]
  - VITH NERVE PARALYSIS [None]
